FAERS Safety Report 13349599 (Version 2)
Quarter: 2017Q2

REPORT INFORMATION
  Report Type: Spontaneous
  Country: DE (occurrence: DE)
  Receive Date: 20170320
  Receipt Date: 20170523
  Transmission Date: 20170830
  Serious: Yes (Other)
  Sender: FDA-Public Use
  Company Number: DE-AUROBINDO-AUR-APL-2017-31082

PATIENT
  Age: 73 Year
  Sex: Male

DRUGS (1)
  1. AMIODARONE 200MG [Suspect]
     Active Substance: AMIODARONE
     Indication: ARRHYTHMIA
     Dosage: 200 MG, DAILY
     Route: 065

REACTIONS (4)
  - Vestibular disorder [Recovered/Resolved]
  - Gait disturbance [Recovered/Resolved]
  - Polyneuropathy [Recovered/Resolved]
  - Vertigo [Recovered/Resolved]
